FAERS Safety Report 9517643 (Version 1)
Quarter: 2013Q3

REPORT INFORMATION
  Report Type: Spontaneous
  Country: US (occurrence: US)
  Receive Date: 20130912
  Receipt Date: 20130912
  Transmission Date: 20140515
  Serious: No
  Sender: FDA-Public Use
  Company Number: US-009507513-1309USA003205

PATIENT
  Age: 21 Year
  Sex: Female
  Weight: 74.83 kg

DRUGS (1)
  1. IMPLANON [Suspect]
     Indication: CONTRACEPTION
     Dosage: UNK
     Dates: start: 20120427

REACTIONS (4)
  - Metrorrhagia [Unknown]
  - Menorrhagia [Unknown]
  - Device dislocation [Unknown]
  - Medication error [Unknown]
